FAERS Safety Report 8810942 (Version 1)
Quarter: 2012Q4

REPORT INFORMATION
  Report Type: 
  Country: US (occurrence: US)
  Receive Date: 20120927
  Receipt Date: 20120927
  Transmission Date: 20130627
  Serious: Yes (Other)
  Sender: FDA-Public Use
  Company Number: US-BAYER-2012-097846

PATIENT
  Age: 17 Year
  Sex: Female

DRUGS (1)
  1. LEVONORGESTREL [Suspect]
     Route: 015

REACTIONS (1)
  - Pelvic inflammatory disease [Recovering/Resolving]
